FAERS Safety Report 10466446 (Version 1)
Quarter: 2014Q3

REPORT INFORMATION
  Report Type: Spontaneous
  Country: US (occurrence: None)
  Receive Date: 20140919
  Receipt Date: 20140919
  Transmission Date: 20150326
  Serious: Yes (Other)
  Sender: FDA-Public Use
  Company Number: None

PATIENT
  Age: 65 Year
  Sex: Female
  Weight: 79.38 kg

DRUGS (4)
  1. MIRAPEX [Suspect]
     Active Substance: PRAMIPEXOLE DIHYDROCHLORIDE
     Indication: CONSTIPATION
     Dosage: 1 TAB AT BEDTIME ONCE DAILY
  2. MIRAPEX [Suspect]
     Active Substance: PRAMIPEXOLE DIHYDROCHLORIDE
     Indication: ABDOMINAL DISCOMFORT
     Dosage: 1 TAB AT BEDTIME ONCE DAILY
  3. MIRAPEX [Suspect]
     Active Substance: PRAMIPEXOLE DIHYDROCHLORIDE
     Indication: DYSPNOEA
     Dosage: 1 TAB AT BEDTIME ONCE DAILY
  4. MIRAPEX [Suspect]
     Active Substance: PRAMIPEXOLE DIHYDROCHLORIDE
     Indication: CHEST PAIN
     Dosage: 1 TAB AT BEDTIME ONCE DAILY

REACTIONS (5)
  - Chest pain [None]
  - Headache [None]
  - Abdominal distension [None]
  - Dyspnoea [None]
  - Abdominal pain upper [None]

NARRATIVE: CASE EVENT DATE: 20140915
